FAERS Safety Report 13822552 (Version 1)
Quarter: 2017Q3

REPORT INFORMATION
  Report Type: Spontaneous
  Country: FR (occurrence: FR)
  Receive Date: 20170801
  Receipt Date: 20170801
  Transmission Date: 20171127
  Serious: Yes (Hospitalization)
  Sender: FDA-Public Use
  Company Number: FR-009507513-1707FRA010882

PATIENT
  Age: 62 Year
  Sex: Female

DRUGS (10)
  1. IMIPENEM AND CILASTATIN [Suspect]
     Active Substance: CILASTATIN SODIUM\IMIPENEM
     Indication: ENTEROCOLITIS
     Dosage: UNK
     Route: 042
     Dates: start: 20170130, end: 20170218
  2. PANTOPRAZOLE [Concomitant]
     Active Substance: PANTOPRAZOLE
  3. NEBIVOLOL. [Concomitant]
     Active Substance: NEBIVOLOL
  4. POLARAMINE [Concomitant]
     Active Substance: DEXCHLORPHENIRAMINE MALEATE
  5. NOVORAPID [Concomitant]
     Active Substance: INSULIN ASPART
  6. VANCOMYCINE SANDOZ [Suspect]
     Active Substance: VANCOMYCIN
     Indication: ENTEROCOLITIS
     Dosage: 2750MG/ 24H
     Route: 042
     Dates: start: 20170130, end: 20170213
  7. INSULIN [Concomitant]
     Active Substance: INSULIN NOS
  8. OXYNORM [Concomitant]
     Active Substance: OXYCODONE HYDROCHLORIDE
  9. ACETAMINOPHEN. [Concomitant]
     Active Substance: ACETAMINOPHEN
  10. ATARAX [Concomitant]
     Active Substance: HYDROXYZINE HYDROCHLORIDE

REACTIONS (3)
  - Pyrexia [Recovered/Resolved]
  - Dermatitis bullous [Recovered/Resolved]
  - Toxic epidermal necrolysis [Recovered/Resolved]

NARRATIVE: CASE EVENT DATE: 20170213
